FAERS Safety Report 7228735 (Version 8)
Quarter: 2014Q2

REPORT INFORMATION
  Report Type: Spontaneous
  Country: US (occurrence: US)
  Receive Date: 20091223
  Receipt Date: 20140610
  Transmission Date: 20141212
  Serious: Yes (Hospitalization)
  Sender: FDA-Public Use
  Company Number: US-BAYER-200942711NA

PATIENT
  Age: 44 Year
  Sex: Female
  Weight: 111.11 kg

DRUGS (9)
  1. YAZ [Suspect]
     Route: 048
     Dates: start: 200806, end: 20080703
  2. YASMIN [Suspect]
     Dosage: UNK
     Dates: start: 2008
  3. OCELLA [Suspect]
     Dosage: UNK
     Dates: start: 2008
  4. LEVOTHYROXINE [Concomitant]
     Dosage: 75 MCG/24HR, UNK
  5. REQUIP [Concomitant]
     Indication: RESTLESS LEGS SYNDROME
  6. FENOFIBRATE [Concomitant]
     Indication: HYPERLIPIDAEMIA
  7. MIDRIN [Concomitant]
     Indication: MIGRAINE
  8. IBUPROFEN [Concomitant]
     Indication: PAIN
  9. OMEGA-3 [Concomitant]
     Dosage: UNK
     Route: 048

REACTIONS (9)
  - Cerebrovascular accident [None]
  - Thrombosis [Unknown]
  - Injury [None]
  - Pain [None]
  - Abdominal pain [None]
  - General physical health deterioration [None]
  - Anxiety [None]
  - Emotional distress [None]
  - Pain [None]
